FAERS Safety Report 5562341-4 (Version None)
Quarter: 2007Q4

REPORT INFORMATION
  Report Type: 
  Country: None (occurrence: None)
  Receive Date: 20071215
  Receipt Date: 20070806
  Transmission Date: 20080405
  Serious: No
  Sender: FDA-Public Use
  Company Number: US-AMGEN-US237545

PATIENT
  Sex: Female
  Weight: 140.3 kg

DRUGS (5)
  1. ENBREL [Suspect]
     Indication: PSORIATIC ARTHROPATHY
     Route: 058
     Dates: start: 20070611, end: 20070715
  2. METHOTREXATE [Concomitant]
     Route: 065
     Dates: start: 20060901
  3. IBUPROFEN [Concomitant]
     Route: 065
  4. HYDROCHLOROTHIAZIDE [Concomitant]
     Route: 065
  5. LOTREL [Concomitant]

REACTIONS (14)
  - ARTHRALGIA [None]
  - DYSPNOEA [None]
  - ERYTHEMA [None]
  - EYE PAIN [None]
  - EYE SWELLING [None]
  - EYELID OEDEMA [None]
  - HEPATIC ENZYME INCREASED [None]
  - INFLUENZA [None]
  - JOINT STIFFNESS [None]
  - MALAISE [None]
  - MUSCULAR WEAKNESS [None]
  - MYALGIA [None]
  - NAUSEA [None]
  - SWELLING FACE [None]
